FAERS Safety Report 7202235-1 (Version None)
Quarter: 2010Q4

REPORT INFORMATION
  Report Type: 
  Country: None (occurrence: None)
  Receive Date: 20101229
  Receipt Date: 20101217
  Transmission Date: 20110411
  Serious: Yes (Other)
  Sender: FDA-Public Use
  Company Number: PHHY2010NZ22762

PATIENT
  Sex: Female

DRUGS (1)
  1. GLEEVEC [Suspect]
     Indication: CHRONIC MYELOID LEUKAEMIA
     Dosage: 200MG + 400MG; UNK

REACTIONS (2)
  - CHRONIC MYELOID LEUKAEMIA TRANSFORMATION [None]
  - MYELOFIBROSIS [None]
